FAERS Safety Report 5679943-7 (Version None)
Quarter: 2008Q1

REPORT INFORMATION
  Report Type: 
  Country: None (occurrence: None)
  Receive Date: 20080324
  Receipt Date: 20080307
  Transmission Date: 20080703
  Serious: Yes (Death)
  Sender: FDA-Public Use
  Company Number: 2008JP001004

PATIENT
  Age: 9 Year
  Sex: Male

DRUGS (4)
  1. PROGRAF [Suspect]
     Indication: STEM CELL TRANSPLANT
  2. METHOTREXATE FORMULATION UNKNOWN [Concomitant]
  3. PREDNISOLONE [Concomitant]
  4. THALIDOMIDE (THALIDOMIDE) FORMULATION UNKNOWN [Concomitant]

REACTIONS (5)
  - ABDOMINAL PAIN [None]
  - GRAFT VERSUS HOST DISEASE [None]
  - MYOCARDITIS [None]
  - VENTRICULAR FIBRILLATION [None]
  - VOMITING [None]
